FAERS Safety Report 8015166 (Version 3)
Quarter: 2013Q4

REPORT INFORMATION
  Report Type: Spontaneous
  Country: US (occurrence: US)
  Receive Date: 20110629
  Receipt Date: 20131008
  Transmission Date: 20140711
  Serious: Yes (Other)
  Sender: FDA-Public Use
  Company Number: US-BRISTOL-MYERS SQUIBB COMPANY-15853963

PATIENT
  Age: 40 Year
  Sex: Male
  Weight: 97 kg

DRUGS (1)
  1. ABILIFY TABS [Suspect]
     Indication: BIPOLAR DISORDER
     Dosage: 2 1/2 TO 3YRS AGO TRETMENT IS STARTED
     Dates: start: 2009, end: 201102

REACTIONS (3)
  - Mania [Unknown]
  - Obsessive-compulsive disorder [Unknown]
  - Mental impairment [Unknown]
